FAERS Safety Report 5148302-8 (Version None)
Quarter: 2006Q4

REPORT INFORMATION
  Report Type: 
  Country: None (occurrence: None)
  Receive Date: 20061107
  Receipt Date: 20061024
  Transmission Date: 20070319
  Serious: Yes (Other)
  Sender: FDA-Public Use
  Company Number: DSK-2006-12483

PATIENT
  Age: 62 Year
  Sex: Female

DRUGS (1)
  1. TARIVID OTIC SOLUTION [Suspect]
     Indication: EAR INFECTION
     Dosage: CYCLICALLY SOLUTION NOS AURICULAR (OTIC)
     Route: 001
     Dates: start: 20060501, end: 20060601

REACTIONS (1)
  - TENDON RUPTURE [None]
